FAERS Safety Report 9441547 (Version 2)
Quarter: 2013Q3

REPORT INFORMATION
  Report Type: Spontaneous
  Country: JP (occurrence: JP)
  Receive Date: 20130805
  Receipt Date: 20130819
  Transmission Date: 20140515
  Serious: Yes (Death, Life-Threatening, Other)
  Sender: FDA-Public Use
  Company Number: JP-ROCHE-1255444

PATIENT
  Age: 68 Year
  Sex: Male

DRUGS (17)
  1. XELODA [Suspect]
     Indication: COLON CANCER METASTATIC
     Dosage: IT IS ADMINISTER/ONE WEEKLY HOLIDAY MEDICINE FOR TWO WEEKS
     Route: 048
     Dates: start: 20121002, end: 20121016
  2. XELODA [Suspect]
     Indication: COLON CANCER METASTATIC
     Dosage: IT IS ADMINISTER/ONE WEEKLY HOLIDAY MEDICINE FOR TWO WEEKS.
     Route: 048
     Dates: start: 20121024, end: 20121107
  3. XELODA [Suspect]
     Indication: COLON CANCER METASTATIC
     Dosage: IT IS ADMINISTER/ONE WEEKLY HOLIDAY MEDICINE FOR TWO WEEKS.
     Route: 048
     Dates: start: 20121114, end: 20121128
  4. XELODA [Suspect]
     Indication: COLON CANCER METASTATIC
     Dosage: IT IS ADMINISTER/ONE WEEKLY HOLIDAY MEDICINE FOR TWO WEEKS.
     Route: 048
     Dates: start: 20121205, end: 20121219
  5. XELODA [Suspect]
     Indication: COLON CANCER METASTATIC
     Dosage: IT IS ADMINISTER/ONE WEEKLY HOLIDAY MEDICINE FOR TWO WEEKS.
     Route: 048
     Dates: start: 20121226, end: 20130106
  6. ELPLAT [Suspect]
     Indication: COLON CANCER METASTATIC
     Route: 041
     Dates: start: 20121002, end: 20121002
  7. ELPLAT [Suspect]
     Indication: COLON CANCER METASTATIC
     Route: 041
     Dates: start: 20121024, end: 20121024
  8. ELPLAT [Suspect]
     Indication: COLON CANCER METASTATIC
     Route: 041
     Dates: start: 20121114, end: 20121114
  9. ELPLAT [Suspect]
     Indication: COLON CANCER METASTATIC
     Route: 041
     Dates: start: 20121205, end: 20121205
  10. ELPLAT [Suspect]
     Indication: COLON CANCER METASTATIC
     Route: 041
     Dates: start: 20121226, end: 20121226
  11. WARFARIN [Concomitant]
     Route: 048
     Dates: start: 201112
  12. BAYASPIRIN [Concomitant]
     Route: 048
     Dates: start: 201112
  13. BROTIZOLAM [Concomitant]
     Route: 048
     Dates: start: 20120822
  14. OMEPRAZOLE [Concomitant]
     Route: 048
     Dates: start: 20121002
  15. MOBIC [Concomitant]
     Route: 048
     Dates: start: 20121005
  16. URSO [Concomitant]
     Route: 048
     Dates: start: 20121005
  17. AMLODIPINE [Concomitant]
     Route: 048
     Dates: start: 20121114

REACTIONS (3)
  - Hepatic cirrhosis [Fatal]
  - Anaemia [Unknown]
  - Bronchopneumonia [Unknown]
